FAERS Safety Report 11523324 (Version 1)
Quarter: 2015Q3

REPORT INFORMATION
  Report Type: Spontaneous
  Country: US (occurrence: US)
  Receive Date: 20150918
  Receipt Date: 20150918
  Transmission Date: 20151125
  Serious: No
  Sender: FDA-Public Use
  Company Number: US-ROCHE-739030

PATIENT
  Age: 51 Year
  Sex: Female

DRUGS (2)
  1. COPEGUS [Suspect]
     Active Substance: RIBAVIRIN
     Indication: HEPATITIS C
     Route: 048
  2. PEGASYS [Suspect]
     Active Substance: PEGINTERFERON ALFA-2A
     Indication: HEPATITIS C
     Dosage: FORM: PRE-FILLED SYRINGE
     Route: 065

REACTIONS (7)
  - Chills [Unknown]
  - Myalgia [Unknown]
  - Insomnia [Unknown]
  - Pyrexia [Unknown]
  - Malaise [Unknown]
  - Rash macular [Unknown]
  - Arthralgia [Unknown]

NARRATIVE: CASE EVENT DATE: 20101101
